FAERS Safety Report 20472281 (Version 3)
Quarter: 2022Q2

REPORT INFORMATION
  Report Type: Report from Study
  Country: DO (occurrence: DO)
  Receive Date: 20220214
  Receipt Date: 20220401
  Transmission Date: 20220720
  Serious: Yes (Hospitalization)
  Sender: FDA-Public Use
  Company Number: DO-ABBVIE-22K-279-4276785-00

PATIENT
  Sex: Male
  Weight: 68.9 kg

DRUGS (1)
  1. HUMIRA [Suspect]
     Active Substance: ADALIMUMAB
     Indication: Ankylosing spondylitis
     Route: 058
     Dates: start: 20211009, end: 20211022

REACTIONS (13)
  - Accident at work [Recovering/Resolving]
  - Tongue discomfort [Recovering/Resolving]
  - Burn oral cavity [Recovering/Resolving]
  - Exposure to toxic agent [Recovering/Resolving]
  - Salivary gland disorder [Recovering/Resolving]
  - Gastrointestinal disorder [Not Recovered/Not Resolved]
  - Dyspepsia [Recovering/Resolving]
  - Flatulence [Unknown]
  - Dyspepsia [Recovering/Resolving]
  - Abdominal distension [Not Recovered/Not Resolved]
  - Hypoaesthesia oral [Recovering/Resolving]
  - Productive cough [Recovering/Resolving]
  - Skin exfoliation [Recovering/Resolving]

NARRATIVE: CASE EVENT DATE: 20220101
